FAERS Safety Report 6397396-0 (Version None)
Quarter: 2009Q4

REPORT INFORMATION
  Report Type: 
  Country: None (occurrence: None)
  Receive Date: 20091012
  Receipt Date: 20090930
  Transmission Date: 20100525
  Serious: Yes (Other)
  Sender: FDA-Public Use
  Company Number: PHHY2009DK30920

PATIENT
  Sex: Female
  Weight: 76 kg

DRUGS (3)
  1. ACLASTA [Suspect]
     Indication: OSTEOPOROSIS
     Dosage: 5 MG, UNK
     Route: 042
     Dates: start: 20090224, end: 20090225
  2. UNIKALK FORTE [Concomitant]
     Indication: OSTEOPOROSIS
     Dosage: 1 DF, BID
     Dates: start: 20040101
  3. VITAMIN D3 [Concomitant]
     Indication: OSTEOPOROSIS
     Dosage: ONCE DAILY
     Dates: start: 20081126

REACTIONS (6)
  - CONJUNCTIVITIS [None]
  - DIZZINESS [None]
  - ERYTHEMA OF EYELID [None]
  - EYELID OEDEMA [None]
  - HYPOACUSIS [None]
  - TINNITUS [None]
